FAERS Safety Report 6768887-5 (Version None)
Quarter: 2010Q2

REPORT INFORMATION
  Report Type: 
  Country: None (occurrence: None)
  Receive Date: 20100611
  Receipt Date: 20100601
  Transmission Date: 20101027
  Serious: Yes (Other)
  Sender: FDA-Public Use
  Company Number: 20108370

PATIENT
  Age: 65 Year
  Sex: Female
  Weight: 53 kg

DRUGS (1)
  1. BACLOFEN [Suspect]
     Indication: MUSCLE SPASTICITY
     Dosage: 24-27.5 MCG, DAILY, INTRATHECAL
     Route: 037

REACTIONS (3)
  - FLUID RETENTION [None]
  - HAEMORRHAGE [None]
  - IMPLANT SITE EFFUSION [None]
